FAERS Safety Report 9534660 (Version 2)
Quarter: 2013Q3

REPORT INFORMATION
  Report Type: Spontaneous
  Country: US (occurrence: US)
  Receive Date: 20130918
  Receipt Date: 20130918
  Transmission Date: 20140515
  Serious: Yes (Hospitalization, Disabling, Other)
  Sender: FDA-Public Use
  Company Number: US-MERCK-0703USA01448

PATIENT
  Age: 35 Year
  Sex: Female

DRUGS (73)
  1. CEPHALEXIN [Suspect]
  2. MUPIROCIN [Suspect]
     Route: 061
  3. OSELTAMIVIR [Suspect]
     Dosage: 150 MG, QD
  4. ENDAL-HD [Suspect]
  5. TRIAMCINOLONE ACETONIDE [Suspect]
     Route: 030
  6. PRILOSEC [Suspect]
  7. EXGEST LA [Suspect]
     Dosage: 2 U
     Route: 048
  8. MESCOLOR [Suspect]
     Dosage: 2 U
  9. TRIAZOLAM [Suspect]
     Dosage: .25 MG, QD
  10. LORCET PLUS [Suspect]
     Dosage: 2 U
     Route: 048
  11. ECONAZOLE NITRATE [Suspect]
  12. ARTHROTEC [Suspect]
     Dosage: 150 MG, QD
  13. DIAZEPAM [Suspect]
  14. CELECOXIB [Suspect]
     Dosage: 200 MG, QD
  15. MK-0805 [Suspect]
     Dosage: 40 MG, QD
  16. VERAPAMIL [Suspect]
     Dosage: 120 MG, QD
  17. METOPROLOL [Suspect]
  18. PRINIVIL [Suspect]
  19. BISOPROLOL [Suspect]
  20. AMLODIPINE BESYLATE [Suspect]
     Dosage: 5 MG, QD
  21. MK-0954 [Suspect]
  22. COVERA [Suspect]
  23. ZEBETA [Suspect]
  24. ALPRAZOLAM [Suspect]
     Dosage: 3 MG
  25. VERAPAMIL [Suspect]
     Dosage: 120 MG, QD
  26. CETIRIZINE HYDROCHLORIDE [Suspect]
  27. PARACETAMOL TABLETS BP [Suspect]
  28. GUAIFENESIN (+) PSEUDOEPHEDRINE HYDROCHLORIDE [Suspect]
  29. BACTRIM DS [Suspect]
  30. BACTRIM [Suspect]
  31. MK-0966 [Suspect]
     Route: 048
  32. ADVAIR [Suspect]
     Route: 055
  33. SUCRALFATE [Suspect]
  34. AUGMENTIN [Suspect]
     Dosage: 1750 MG, QD
  35. FLUTICASONE PROPIONATE [Suspect]
  36. BUPROPION HYDROCHLORIDE [Suspect]
     Dosage: 30 MG, UNK
  37. XANAX [Suspect]
     Dosage: 1 MG, TID
  38. ZYRTEC [Suspect]
  39. LATANOPROST [Suspect]
  40. DEXAMETHASONE [Suspect]
  41. CARISOPRODOL [Suspect]
     Route: 048
  42. CLONAZEPAM [Suspect]
  43. RESLIN TABLETS 25 [Suspect]
  44. GABAPENTIN [Suspect]
  45. FLUOXETINE HYDROCHLORIDE [Suspect]
  46. ATENOLOL [Suspect]
     Dosage: 50 MG, QD
  47. MELOXICAM [Suspect]
  48. ZYDONE [Suspect]
  49. OLMESARTAN MEDOXOMIL [Suspect]
     Dosage: 40 MG, QD
  50. ALLEGRA-D [Suspect]
  51. MOMETASONE FUROATE [Suspect]
  52. CANDESARTAN [Suspect]
  53. CILEXETIL [Suspect]
  54. LANSOPRAZOLE [Suspect]
  55. FLUCONAZOLE [Suspect]
  56. ESOMEPRAZOLE MAGNESIUM [Suspect]
  57. LOTRISONE [Suspect]
  58. RIZATRIPTAN BENZOATE [Suspect]
  59. LOMOTIL [Suspect]
  60. KETOCONAZOLE [Suspect]
     Dosage: 200 MG, QD
  61. SINEMET [Suspect]
  62. TRAMADOL HYDROCHLORIDE [Suspect]
  63. MEPERIDINE HYDROCHLORIDE [Suspect]
  64. CLOTRIMAZOLE [Suspect]
  65. METAXALONE [Suspect]
  66. PERCOCET [Suspect]
  67. CODICLEAR DH SYRUP [Suspect]
  68. QUININE [Suspect]
  69. MOXIFLOXACIN HYDROCHLORIDE [Suspect]
  70. CEFAZOLIN [Suspect]
     Dosage: 500 MG, QD
     Route: 048
  71. DURATUSS [Suspect]
  72. LORTAB [Suspect]
  73. ERYTHROMYCIN [Suspect]
     Dosage: 1500 MG, QD
     Route: 048

REACTIONS (31)
  - Abdominal pain upper [Unknown]
  - Arthritis [Unknown]
  - Arthropod bite [Unknown]
  - Blood creatinine increased [Unknown]
  - Bronchitis [Unknown]
  - Bronchospasm [Unknown]
  - Cholelithiasis [Unknown]
  - Cough [Unknown]
  - Deep vein thrombosis [Unknown]
  - Dizziness [Unknown]
  - Glaucoma [Unknown]
  - Malaise [Unknown]
  - Neuropathy peripheral [Unknown]
  - Osteoarthritis [Unknown]
  - Pain in extremity [Unknown]
  - Purpura senile [Unknown]
  - Renal failure [Unknown]
  - Resorption bone increased [Unknown]
  - Tarsal tunnel syndrome [Unknown]
  - Thrombophlebitis superficial [Unknown]
  - Vasculitis [Unknown]
  - Vertigo positional [Unknown]
  - Vestibular disorder [Unknown]
  - Phlebitis [Unknown]
  - Drug interaction [Unknown]
  - Blood sodium decreased [Unknown]
  - Blood cholesterol increased [Unknown]
  - Blood chloride decreased [Unknown]
  - Blood alkaline phosphatase increased [Unknown]
  - Aspartate aminotransferase increased [Unknown]
  - Alanine aminotransferase increased [Unknown]
